FAERS Safety Report 5155867-9 (Version None)
Quarter: 2006Q4

REPORT INFORMATION
  Report Type: 
  Country: None (occurrence: None)
  Receive Date: 20061122
  Receipt Date: 20061019
  Transmission Date: 20070319
  Serious: Yes (Hospitalization)
  Sender: FDA-Public Use
  Company Number: JP-BAYER-200611142BYL

PATIENT
  Age: 78 Year
  Sex: Male

DRUGS (6)
  1. GLUCOBAY [Suspect]
     Indication: DIABETES MELLITUS
     Dosage: TOTAL DAILY DOSE: 150 MG  UNIT DOSE: 50 MG
     Route: 048
     Dates: start: 20041015, end: 20061025
  2. DIOVAN [Concomitant]
     Dosage: TOTAL DAILY DOSE: 160 MG
     Route: 048
     Dates: start: 20021114
  3. BUFFERIN [Concomitant]
     Dosage: TOTAL DAILY DOSE: 81 MG
     Route: 048
     Dates: start: 20030708
  4. GASTER D [Concomitant]
     Route: 048
     Dates: start: 20030708
  5. MENIACE [Concomitant]
     Dosage: TOTAL DAILY DOSE: 18 MG  UNIT DOSE: 6 MG
     Route: 048
     Dates: start: 20030627
  6. YOUCOBAL [Concomitant]
     Route: 048
     Dates: start: 20040329

REACTIONS (1)
  - HYPOGLYCAEMIA [None]
